FAERS Safety Report 5870513-4 (Version None)
Quarter: 2008Q3

REPORT INFORMATION
  Report Type: 
  Country: None (occurrence: None)
  Receive Date: 20080904
  Receipt Date: 20080826
  Transmission Date: 20090109
  Serious: Yes (Hospitalization)
  Sender: FDA-Public Use
  Company Number: US-BAXTER-2008BH009170

PATIENT
  Age: 30 Year
  Sex: Male

DRUGS (4)
  1. GAMMAGARD LIQUID [Suspect]
     Indication: AUTOIMMUNE NEUTROPENIA
     Dosage: DOSE UNIT:UNKNOWN
     Route: 042
     Dates: start: 20080601, end: 20080601
  2. GAMMAGARD LIQUID [Suspect]
     Dosage: DOSE UNIT:UNKNOWN
     Route: 042
     Dates: start: 20080701, end: 20080701
  3. GAMMAGARD LIQUID [Suspect]
     Dosage: DOSE UNIT:UNKNOWN
     Route: 042
     Dates: start: 20080819, end: 20080820
  4. NEUPOGEN [Concomitant]
     Indication: AUTOIMMUNE NEUTROPENIA
     Dosage: DOSE UNIT:UNKNOWN
     Route: 065
     Dates: start: 20070101

REACTIONS (4)
  - OEDEMA PERIPHERAL [None]
  - PAIN IN EXTREMITY [None]
  - RASH [None]
  - VASCULITIS [None]
